FAERS Safety Report 17047049 (Version 1)
Quarter: 2019Q4

REPORT INFORMATION
  Report Type: Spontaneous
  Country: US (occurrence: US)
  Receive Date: 20191119
  Receipt Date: 20191119
  Transmission Date: 20200122
  Serious: No
  Sender: FDA-Public Use
  Company Number: US-ACCORD-073382

PATIENT
  Age: 69 Year
  Sex: Male
  Weight: 78.02 kg

DRUGS (4)
  1. ATORVASTATIN [Concomitant]
     Active Substance: ATORVASTATIN
     Indication: BLOOD CHOLESTEROL INCREASED
  2. HYDROCHLOROTHIAZIDE. [Suspect]
     Active Substance: HYDROCHLOROTHIAZIDE
     Indication: HYPERTENSION
     Dosage: 12.5 MG DAILY
     Dates: start: 2017, end: 20180928
  3. TAMSULOSIN/TAMSULOSIN HYDROCHLORIDE [Concomitant]
     Indication: PROSTATOMEGALY
  4. CETIRIZINE HYDROCHLORIDE/PSEUDOEPHEDRINE HYDROCHLORIDE [Concomitant]
     Indication: HYPERSENSITIVITY

REACTIONS (8)
  - Somnolence [Recovering/Resolving]
  - Dizziness [Recovering/Resolving]
  - Pollakiuria [Recovering/Resolving]
  - Headache [Recovering/Resolving]
  - Weight decreased [Unknown]
  - Dry mouth [Recovering/Resolving]
  - Asthenia [Recovering/Resolving]
  - Thirst [Recovering/Resolving]
